FAERS Safety Report 20909216 (Version 1)
Quarter: 2022Q2

REPORT INFORMATION
  Report Type: Spontaneous
  Country: US (occurrence: US)
  Receive Date: 20220603
  Receipt Date: 20220603
  Transmission Date: 20220720
  Serious: Yes (Hospitalization)
  Sender: FDA-Public Use
  Company Number: US-TOLMAR, INC.-22US034939

PATIENT
  Age: 53 Year
  Sex: Female

DRUGS (2)
  1. ELIGARD [Suspect]
     Active Substance: LEUPROLIDE ACETATE
     Indication: Breast cancer
     Dosage: 11.25 MILLIGRAM
     Route: 030
     Dates: start: 20200608
  2. LEVOTHYROXINE SODIUM [Concomitant]
     Active Substance: LEVOTHYROXINE SODIUM
     Indication: Pituitary tumour benign
     Dosage: 50 PICOGRAM, QD
     Dates: start: 2020

REACTIONS (4)
  - Hypopituitarism [Unknown]
  - Visual field defect [Unknown]
  - Pituitary apoplexy [Unknown]
  - Off label use [Unknown]

NARRATIVE: CASE EVENT DATE: 20200612
